FAERS Safety Report 10183880 (Version 2)
Quarter: 2014Q2

REPORT INFORMATION
  Report Type: Spontaneous
  Country: GB (occurrence: GB)
  Receive Date: 20140520
  Receipt Date: 20140605
  Transmission Date: 20141212
  Serious: Yes (Hospitalization, Other)
  Sender: FDA-Public Use
  Company Number: GB-ASTRAZENECA-2014SE32489

PATIENT
  Age: 74 Year
  Sex: 0
  Weight: 60 kg

DRUGS (22)
  1. ANASTROZOLE [Suspect]
     Indication: BREAST CANCER
     Route: 048
     Dates: start: 20140110, end: 20140128
  2. ALENDRONIC ACID [Concomitant]
     Dates: start: 20131029
  3. ASPIRIN [Concomitant]
     Dates: start: 20140404
  4. BIOTENE DRY MOUTH [Concomitant]
     Dates: start: 20140217, end: 20140224
  5. CALCICHEW D3 [Concomitant]
     Dates: start: 20140121
  6. CARBOCISTEINE [Concomitant]
     Dates: start: 20140404
  7. CLARITHROMYCIN [Concomitant]
     Dates: start: 20120703
  8. DIORALYTE [Concomitant]
     Dates: start: 20140219
  9. DOXYCYCLINE [Concomitant]
     Dates: start: 20140130
  10. ETHAMBUTOL [Concomitant]
     Dates: start: 20120703
  11. FERROUS FUMARATE [Concomitant]
     Dates: start: 20140121
  12. FORTISIP [Concomitant]
     Dates: start: 20140217
  13. LOPERAMIDE [Concomitant]
     Dates: start: 20140219
  14. OMEPRAZOLE [Concomitant]
     Dates: start: 20140121
  15. PARACETAMOL [Concomitant]
     Dates: start: 20140121
  16. PREDNISOLONE [Concomitant]
     Dates: start: 20140121
  17. RIFAMPICIN [Concomitant]
     Dates: start: 20120703
  18. SERETIDE [Concomitant]
     Dates: start: 20140121
  19. SULFASALAZINE [Concomitant]
     Dates: start: 20140121
  20. TIOTROPIUM [Concomitant]
     Dates: start: 20140121
  21. TRAMADOL [Concomitant]
     Dates: start: 20140121
  22. VENTOLIN [Concomitant]
     Dates: start: 20140121

REACTIONS (3)
  - Arrhythmia [Recovered/Resolved]
  - Bradycardia [Recovered/Resolved]
  - Syncope [Recovered/Resolved]
